FAERS Safety Report 7720758-3 (Version None)
Quarter: 2011Q3

REPORT INFORMATION
  Report Type: 
  Country: None (occurrence: None)
  Receive Date: 20110822
  Receipt Date: 20110822
  Transmission Date: 20111222
  Serious: Yes (Hospitalization)
  Sender: FDA-Public Use
  Company Number: None

PATIENT
  Age: 56 Year
  Sex: Female
  Weight: 52.1637 kg

DRUGS (1)
  1. CIPROFLOXACIN HCL [Suspect]
     Indication: URINARY TRACT INFECTION
     Dosage: TWO A DAY 7 DAYS ORAL
     Route: 048
     Dates: start: 20110808, end: 20110814

REACTIONS (12)
  - DIZZINESS [None]
  - CONFUSIONAL STATE [None]
  - CHROMATURIA [None]
  - ABNORMAL BEHAVIOUR [None]
  - SKIN DISORDER [None]
  - HYPOAESTHESIA [None]
  - MUCOUS STOOLS [None]
  - WHEEZING [None]
  - ERYTHEMA [None]
  - CONTUSION [None]
  - HEADACHE [None]
  - DYSKINESIA [None]
